FAERS Safety Report 9619582 (Version 1)
Quarter: 2013Q4

REPORT INFORMATION
  Report Type: Spontaneous
  Country: US (occurrence: US)
  Receive Date: 20131014
  Receipt Date: 20131014
  Transmission Date: 20140711
  Serious: Yes (Hospitalization)
  Sender: FDA-Public Use
  Company Number: US-MALLINCKRODT-T201304562

PATIENT
  Age: 9 Year
  Sex: Male

DRUGS (1)
  1. GABLOFEN [Suspect]
     Indication: MUSCLE SPASTICITY
     Dosage: 440.5 MCG/DAY
     Route: 037

REACTIONS (4)
  - Implant site infection [Unknown]
  - Pocket erosion [Unknown]
  - Incision site oedema [Unknown]
  - Incisional drainage [Unknown]
